FAERS Safety Report 6731059-4 (Version None)
Quarter: 2010Q2

REPORT INFORMATION
  Report Type: 
  Country: None (occurrence: None)
  Receive Date: 20100518
  Receipt Date: 20100504
  Transmission Date: 20101027
  Serious: Yes (Other)
  Sender: FDA-Public Use
  Company Number: GB-MYLANLABS-2010S1007893

PATIENT
  Age: 20 Year
  Sex: Male

DRUGS (3)
  1. RISPERIDONE [Suspect]
     Indication: AGITATION
     Route: 048
     Dates: start: 20090201, end: 20100319
  2. SERTRALINE HYDROCHLORIDE [Interacting]
     Indication: ANXIETY
     Route: 048
     Dates: start: 20080101, end: 20100219
  3. SERTRALINE HYDROCHLORIDE [Interacting]
     Indication: DEPRESSION
     Route: 048
     Dates: start: 20080101, end: 20100219

REACTIONS (2)
  - DRUG INTERACTION [None]
  - THROMBOCYTOPENIA [None]
